FAERS Safety Report 6106824-7 (Version None)
Quarter: 2009Q1

REPORT INFORMATION
  Report Type: 
  Country: None (occurrence: None)
  Receive Date: 20090304
  Receipt Date: 20090217
  Transmission Date: 20090719
  Serious: Yes (Life-Threatening)
  Sender: FDA-Public Use
  Company Number: 2009000004

PATIENT
  Age: 61 Year
  Sex: Male
  Weight: 64 kg

DRUGS (5)
  1. ERLOTINIB          (ERLOTINIB) (TABLET) [Suspect]
     Indication: NON-SMALL CELL LUNG CANCER
     Dosage: (150 MG, QD), ORAL, (100 MG, QD), ORAL
     Route: 048
     Dates: start: 20081209, end: 20081217
  2. ERLOTINIB          (ERLOTINIB) (TABLET) [Suspect]
     Indication: NON-SMALL CELL LUNG CANCER
     Dosage: (150 MG, QD), ORAL, (100 MG, QD), ORAL
     Route: 048
     Dates: start: 20081222, end: 20081225
  3. LAC-B     (LACTOBACILLUS BIFIDUS, LYOPHILIZED) [Concomitant]
  4. LOPERAMIDE HCL [Concomitant]
  5. GARENOXACIN MESILATE [Concomitant]

REACTIONS (3)
  - HAEMATURIA [None]
  - INTERSTITIAL LUNG DISEASE [None]
  - MALIGNANT NEOPLASM PROGRESSION [None]
